FAERS Safety Report 8858898 (Version 1)
Quarter: 2012Q4

REPORT INFORMATION
  Report Type: Report from Study
  Country: US (occurrence: US)
  Receive Date: 20121024
  Receipt Date: 20121024
  Transmission Date: 20130627
  Serious: Yes (Life-Threatening)
  Sender: FDA-Public Use
  Company Number: US-ACTELION-A-NJ2012-72585

PATIENT
  Age: 53 Year
  Sex: Male

DRUGS (3)
  1. TRACLEER [Suspect]
     Indication: PULMONARY ARTERIAL HYPERTENSION
     Dosage: 125 mg, UNK
     Route: 048
     Dates: end: 201204
  2. TRACLEER [Suspect]
     Dosage: 125 mg, UNK
     Route: 048
     Dates: start: 201204
  3. ADCIRCA [Concomitant]

REACTIONS (2)
  - Eisenmenger^s syndrome [Recovering/Resolving]
  - Pyrexia [Recovering/Resolving]
